FAERS Safety Report 6184676-7 (Version None)
Quarter: 2009Q2

REPORT INFORMATION
  Report Type: 
  Country: None (occurrence: None)
  Receive Date: 20090508
  Receipt Date: 20090430
  Transmission Date: 20091009
  Serious: Yes (Life-Threatening, Hospitalization, Other)
  Sender: FDA-Public Use
  Company Number: ES-BAXTER-2009BH007958

PATIENT
  Age: 65 Year
  Sex: Female
  Weight: 53 kg

DRUGS (6)
  1. IFOSFAMIDE [Suspect]
     Indication: LEIOMYOSARCOMA
     Route: 042
     Dates: start: 20090126, end: 20090405
  2. DURAGESIC-100 [Suspect]
     Indication: PAIN
     Route: 062
     Dates: start: 20090402, end: 20090406
  3. NEURONTIN [Suspect]
     Indication: NEURALGIA
     Route: 048
     Dates: start: 20090402, end: 20090406
  4. CLEXANE 40 MG (4000 U.I.) AMPOLLAS , 10 AMPOLLAS [Concomitant]
     Indication: PROPHYLAXIS
     Route: 058
     Dates: start: 20090402
  5. VANDRAL 37,5 MG COMOPRIMIDOS,  60 COMPRIMIDOS [Concomitant]
     Indication: PROPHYLAXIS
     Route: 048
     Dates: start: 20090402
  6. OMEPRAZOL [Concomitant]
     Indication: PROPHYLAXIS
     Route: 048
     Dates: start: 20090402

REACTIONS (3)
  - AGITATION [None]
  - COMA [None]
  - MYOCLONUS [None]
